FAERS Safety Report 4311460-9 (Version None)
Quarter: 2004Q1

REPORT INFORMATION
  Report Type: 
  Country: None (occurrence: None)
  Receive Date: 20040303
  Receipt Date: 20040303
  Transmission Date: 20041129
  Serious: No
  Sender: FDA-Public Use
  Company Number: None

PATIENT
  Age: 57 Year
  Sex: Male
  Weight: 74.4 kg

DRUGS (1)
  1. TEQUIN [Suspect]
     Indication: PNEUMONIA ASPIRATION
     Dosage: 400 MG IV Q24H
     Route: 042
     Dates: start: 20031012, end: 20031013

REACTIONS (3)
  - ALANINE AMINOTRANSFERASE INCREASED [None]
  - ASPARTATE AMINOTRANSFERASE INCREASED [None]
  - LIVER FUNCTION TEST ABNORMAL [None]
